FAERS Safety Report 4308741-1 (Version None)
Quarter: 2004Q1

REPORT INFORMATION
  Report Type: 
  Country: None (occurrence: None)
  Receive Date: 20040227
  Receipt Date: 20040217
  Transmission Date: 20041129
  Serious: Yes (Other)
  Sender: FDA-Public Use
  Company Number: 2004-113130-NL

PATIENT
  Age: 34 Year
  Sex: Female

DRUGS (3)
  1. REMERON [Suspect]
  2. ZYPREXA [Suspect]
  3. ADDERALL 10 [Concomitant]

REACTIONS (2)
  - PETIT MAL EPILEPSY [None]
  - SIMPLE PARTIAL SEIZURES [None]
